FAERS Safety Report 5418791-X (Version None)
Quarter: 2007Q3

REPORT INFORMATION
  Report Type: 
  Country: None (occurrence: None)
  Receive Date: 20070718
  Receipt Date: 20060803
  Transmission Date: 20080115
  Serious: Yes (Hospitalization)
  Sender: FDA-Public Use
  Company Number: 2006096419

PATIENT
  Sex: Male
  Weight: 97.5234 kg

DRUGS (2)
  1. CELEBREX [Suspect]
     Indication: DRUG USE FOR UNKNOWN INDICATION
  2. BEXTRA [Suspect]
     Indication: DRUG USE FOR UNKNOWN INDICATION

REACTIONS (4)
  - MYOCARDIAL INFARCTION [None]
  - NERVOUSNESS [None]
  - PULMONARY EMBOLISM [None]
  - THROMBOSIS [None]
